FAERS Safety Report 5092385-0 (Version None)
Quarter: 2006Q3

REPORT INFORMATION
  Report Type: 
  Country: None (occurrence: None)
  Receive Date: 20060825
  Receipt Date: 20060814
  Transmission Date: 20061208
  Serious: Yes (Death, Hospitalization)
  Sender: FDA-Public Use
  Company Number: 147087USA

PATIENT
  Age: 68 Year
  Sex: Male
  Weight: 80.7403 kg

DRUGS (15)
  1. CARBOPLATIN [Suspect]
     Indication: NON-SMALL CELL LUNG CANCER
     Dosage: 737 MILLIGRAM INTRAVENOUS (NOS)
     Route: 042
     Dates: start: 20060403, end: 20060403
  2. PACLITAXEL [Suspect]
     Indication: NON-SMALL CELL LUNG CANCER
     Dosage: 398 MILLIGRAM INTRAVENOUS (NOS)
     Route: 042
     Dates: start: 20060403, end: 20060403
  3. PF-3512676 [Suspect]
     Indication: NON-SMALL CELL LUNG CANCER
     Dosage: 30 MILLIGRAM INTRAVENOUS (NOS)
     Route: 042
     Dates: start: 20060410, end: 20060417
  4. OXYCONTIN [Concomitant]
  5. ACETYLSALICYLIC ACID [Concomitant]
  6. NICODERM [Concomitant]
  7. MEGACE [Concomitant]
  8. ALBUTEROL [Concomitant]
  9. ZOMENTA [Concomitant]
  10. PROCRIT [Concomitant]
  11. INFED [Concomitant]
  12. COLACE [Concomitant]
  13. LEVAQUIN [Concomitant]
  14. RED BLOOD CELLS [Concomitant]
  15. TAMSULOSIN HCL [Concomitant]

REACTIONS (16)
  - ABDOMINAL PAIN LOWER [None]
  - ARTHRALGIA [None]
  - ASTHENIA [None]
  - BACK PAIN [None]
  - CONFUSIONAL STATE [None]
  - DEHYDRATION [None]
  - DYSARTHRIA [None]
  - HYPERCALCAEMIA [None]
  - LUNG CANCER METASTATIC [None]
  - MALIGNANT NEOPLASM PROGRESSION [None]
  - MENTAL STATUS CHANGES [None]
  - METABOLIC ENCEPHALOPATHY [None]
  - METASTASES TO BONE [None]
  - METASTASES TO LUNG [None]
  - OEDEMA PERIPHERAL [None]
  - PITTING OEDEMA [None]
